FAERS Safety Report 5168247-7 (Version None)
Quarter: 2006Q4

REPORT INFORMATION
  Report Type: 
  Country: None (occurrence: None)
  Receive Date: 20061208
  Receipt Date: 20061207
  Transmission Date: 20070319
  Serious: Yes (Hospitalization)
  Sender: FDA-Public Use
  Company Number: 6679

PATIENT
  Age: 76 Year
  Sex: Male

DRUGS (8)
  1. TOPOTECAN [Suspect]
     Dosage: 1.61MG PER DAY
     Route: 065
     Dates: start: 20060904, end: 20061006
  2. PANTETHINE [Concomitant]
     Indication: CONSTIPATION
     Dosage: 1G PER DAY
     Route: 048
     Dates: start: 20051209
  3. MAGNESIUM OXIDE [Concomitant]
     Indication: CONSTIPATION
     Dosage: .4G PER DAY
     Route: 048
     Dates: start: 20051209
  4. LOXOPROFEN SODIUM [Concomitant]
     Indication: PAIN
     Dosage: 60MG PER DAY
     Route: 048
     Dates: start: 20050829
  5. TEPRENONE [Concomitant]
     Indication: GASTRITIS
     Dosage: 50MG PER DAY
     Route: 048
     Dates: start: 20050829
  6. BROMHEXINE HYDROCHLORIDE [Concomitant]
     Dosage: 4MG PER DAY
     Route: 048
     Dates: start: 20050909
  7. NIFEDIPINE [Concomitant]
     Indication: HYPERTENSION
     Dosage: 20MG PER DAY
     Route: 048
     Dates: start: 20050829
  8. ETIZOLAM [Concomitant]
     Indication: INSOMNIA
     Dosage: .5MG PER DAY
     Route: 048
     Dates: start: 20051225

REACTIONS (3)
  - DYSPNOEA [None]
  - INTERSTITIAL LUNG DISEASE [None]
  - OXYGEN SATURATION DECREASED [None]
